FAERS Safety Report 11037755 (Version 1)
Quarter: 2015Q2

REPORT INFORMATION
  Report Type: Spontaneous
  Country: None (occurrence: None)
  Receive Date: 20150415
  Receipt Date: 20150415
  Transmission Date: 20150821
  Serious: Yes (Disabling)
  Sender: FDA-Public Use
  Company Number: None

PATIENT
  Age: 47 Year
  Sex: Female
  Weight: 68.04 kg

DRUGS (2)
  1. SEROQUEL [Suspect]
     Active Substance: QUETIAPINE FUMARATE
     Indication: INSOMNIA
     Dosage: 1 PILL
     Route: 048
     Dates: start: 20140421, end: 20140423
  2. SEROQUEL [Suspect]
     Active Substance: QUETIAPINE FUMARATE
     Indication: ANXIETY
     Dosage: 1 PILL
     Route: 048
     Dates: start: 20140421, end: 20140423

REACTIONS (7)
  - Tendon disorder [None]
  - Anxiety [None]
  - Akathisia [None]
  - Insomnia [None]
  - Depression [None]
  - Fear [None]
  - Myalgia [None]

NARRATIVE: CASE EVENT DATE: 20140414
